FAERS Safety Report 6035360-1 (Version None)
Quarter: 2009Q1

REPORT INFORMATION
  Report Type: 
  Country: None (occurrence: None)
  Receive Date: 20090109
  Receipt Date: 20090109
  Transmission Date: 20090719
  Serious: Yes (Hospitalization, Other)
  Sender: FDA-Public Use
  Company Number: None

PATIENT
  Age: 55 Year
  Sex: Female
  Weight: 54.4316 kg

DRUGS (2)
  1. ALFENTANIL [Suspect]
     Indication: LIGHT ANAESTHESIA
     Dosage: 2250 MCG TOTAL OVER 4 HRS  EVERY 15 - 20 MIN IV BOLUS
     Route: 040
     Dates: start: 20071113, end: 20071113
  2. ALFENTANIL [Suspect]
     Indication: RETINAL DETACHMENT
     Dosage: 2250 MCG TOTAL OVER 4 HRS  EVERY 15 - 20 MIN IV BOLUS
     Route: 040
     Dates: start: 20071113, end: 20071113

REACTIONS (5)
  - CARDIAC ARREST [None]
  - EYE HAEMORRHAGE [None]
  - HEART RATE DECREASED [None]
  - NAUSEA [None]
  - PROCEDURAL COMPLICATION [None]
